FAERS Safety Report 21370507 (Version 2)
Quarter: 2022Q4

REPORT INFORMATION
  Report Type: Other
  Country: PL (occurrence: None)
  Receive Date: 20220923
  Receipt Date: 20221003
  Transmission Date: 20230113
  Serious: No
  Sender: FDA-Public Use
  Company Number: PL-ROCHE-3185969

PATIENT
  Age: 36 Year
  Sex: Male
  Weight: 71 kg

DRUGS (7)
  1. OCRELIZUMAB [Suspect]
     Active Substance: OCRELIZUMAB
     Indication: Relapsing-remitting multiple sclerosis
     Dosage: DATE OF EXPOSURE OF OCRELIZUMAB: 03/JUL/2020(250ML), 12/JUN/2020 (250ML)
     Route: 042
     Dates: start: 20200612
  2. OCRELIZUMAB [Suspect]
     Active Substance: OCRELIZUMAB
     Dosage: DATE OF EXPOSURE:02/JUL/2021 (500ML), 17/DE/2021 (500ML),
     Route: 042
     Dates: start: 20201208, end: 20201208
  3. OCRELIZUMAB [Suspect]
     Active Substance: OCRELIZUMAB
     Route: 042
     Dates: start: 20220809, end: 20220809
  4. DIMETHYL FUMARATE [Concomitant]
     Active Substance: DIMETHYL FUMARATE
     Dates: start: 20180329
  5. DITROPAN [Concomitant]
     Active Substance: OXYBUTYNIN CHLORIDE
     Route: 048
     Dates: start: 20180308
  6. UROFLOW (POLAND) [Concomitant]
     Route: 048
     Dates: start: 20191124
  7. BACLOFEN [Concomitant]
     Active Substance: BACLOFEN
     Route: 048

REACTIONS (1)
  - COVID-19 [Recovered/Resolved]

NARRATIVE: CASE EVENT DATE: 20220704
